FAERS Safety Report 12649820 (Version 1)
Quarter: 2016Q3

REPORT INFORMATION
  Report Type: Spontaneous
  Country: US (occurrence: US)
  Receive Date: 20160812
  Receipt Date: 20160812
  Transmission Date: 20161109
  Serious: Yes (Hospitalization)
  Sender: FDA-Public Use
  Company Number: US-ASTRAZENECA-2016SE55630

PATIENT
  Age: 24425 Day
  Sex: Female
  Weight: 139.7 kg

DRUGS (40)
  1. BRILINTA [Suspect]
     Active Substance: TICAGRELOR
     Indication: CORONARY ARTERIAL STENT INSERTION
     Route: 048
     Dates: start: 20151213, end: 20160520
  2. BYSTOLIC [Concomitant]
     Active Substance: NEBIVOLOL HYDROCHLORIDE
     Indication: HYPERTENSION
     Route: 048
  3. SOFTCLIX LANCETS [Concomitant]
     Dosage: TEST BLOOD SUGAR 7 TIMES DAILY
  4. NITROLINGUAL [Concomitant]
     Active Substance: NITROGLYCERIN
     Dosage: 400 MEG/SPRAY, ONE SPRAY UNDER TONGUE MAY REPEAT EVERY 5 MINUTES
  5. SIMVASTATIN. [Concomitant]
     Active Substance: SIMVASTATIN
     Route: 048
  6. NOVOLOG SLIDING SCALE [Concomitant]
     Indication: DIABETES MELLITUS
     Dosage: BEFORE MEALS
     Route: 058
  7. TOPICORT [Concomitant]
     Active Substance: DESOXIMETASONE
     Dosage: 0.25 % CREAM, APPLY DAILY TO AFFECTED AREA
  8. XOPENEX [Concomitant]
     Active Substance: LEVALBUTEROL HYDROCHLORIDE
     Indication: ASTHMA
     Dosage: 1.25 MG/3 ML SOLUTION FOR NEBULIZATION, 1 PO AS NEEDED
  9. FLONASE [Concomitant]
     Active Substance: FLUTICASONE PROPIONATE
     Dosage: 50 MEG/ACTUATION SPRAY, SUSPENSION, 1 SPRAY EACH NOSTRIL ONCE DAILY
  10. RANOLAZINE [Concomitant]
     Active Substance: RANOLAZINE
     Route: 048
  11. POTASSIUM CHLORIDE. [Concomitant]
     Active Substance: POTASSIUM CHLORIDE
     Route: 048
  12. DOXAZOSIN [Concomitant]
     Active Substance: DOXAZOSIN\DOXAZOSIN MESYLATE
     Indication: HYPERTENSION
     Route: 048
  13. LEVEMIR 40-50 UNITS [Concomitant]
     Indication: DIABETES MELLITUS
     Dosage: 40, TWO TIMES A DAY
     Route: 058
  14. ACCU-CHEK ACTIVE TEST STRIP [Concomitant]
     Dosage: TEST BLOOD SUGAR 7 TIMES DAILY
  15. REPATHA [Concomitant]
     Active Substance: EVOLOCUMAB
     Dosage: 140 MG/ML SUBCUTANEOUS PEN INJECTOR, ONE SHOT EVERY OTHER WEEK
     Route: 058
  16. NITROGLYCERIN. [Concomitant]
     Active Substance: NITROGLYCERIN
     Indication: CHEST PAIN
     Dosage: 0.4 MG SUBLINGUAL TABLET, ONE TABLET AS NEEDED
  17. LEVOTHYROXINE. [Concomitant]
     Active Substance: LEVOTHYROXINE
     Indication: THYROID DISORDER
     Dosage: 75 UG, 3 BY MOUTH ONCE A DAY WITH 2 TABLETS TWICE PER WEEK
     Route: 048
  18. HYDRALAZINE [Concomitant]
     Active Substance: HYDRALAZINE HYDROCHLORIDE
     Indication: HYPERTENSION
     Route: 048
  19. STOOL SOFTNER [Concomitant]
     Active Substance: DOCUSATE SODIUM
     Route: 048
  20. MECLIZINE [Concomitant]
     Active Substance: MECLIZINE HYDROCHLORIDE
     Indication: DIZZINESS
     Route: 048
  21. METOPROLOL TARTRATE. [Concomitant]
     Active Substance: METOPROLOL TARTRATE
     Route: 048
  22. IMDUR [Suspect]
     Active Substance: ISOSORBIDE MONONITRATE
     Indication: HYPERTENSION
     Route: 048
  23. BUMEX [Concomitant]
     Active Substance: BUMETANIDE
     Indication: DIURETIC THERAPY
     Route: 048
  24. ASPIRIN. [Concomitant]
     Active Substance: ASPIRIN
     Indication: STENT PLACEMENT
     Route: 048
     Dates: start: 201512
  25. VITAMIN D3 [Concomitant]
     Active Substance: CHOLECALCIFEROL
     Indication: VITAMIN SUPPLEMENTATION
     Route: 048
  26. GLUCAGON. [Concomitant]
     Active Substance: GLUCAGON
     Dosage: 1 MG INJECTION KIT, USE AS DIRECTED
  27. MAGNESIUM HYDROXIDE. [Concomitant]
     Active Substance: MAGNESIUM HYDROXIDE
     Dosage: 400 MG (170 MG) TABLET, CHEWABLE, 1 PO ONCE DAILY
  28. SILVADENE [Concomitant]
     Active Substance: SILVER SULFADIAZINE
     Dosage: 1 % CREAM, APPLY TO AFFECTED AREA DAILY
  29. TIZANIDINE. [Concomitant]
     Active Substance: TIZANIDINE
     Indication: MUSCLE SPASMS
     Route: 048
  30. PLAVIX [Concomitant]
     Active Substance: CLOPIDOGREL BISULFATE
     Route: 048
  31. MELATONIN [Concomitant]
     Active Substance: MELATONIN
     Indication: SLEEP DISORDER
     Route: 048
  32. ISOSORBIDE MONONITRATE. [Concomitant]
     Active Substance: ISOSORBIDE MONONITRATE
     Dosage: 60 MG TABLET,EXTENDED RELEASE 24 HR, 1 BY MOUTH ONCE A DAY
     Route: 048
  33. VALIUM [Concomitant]
     Active Substance: DIAZEPAM
     Dosage: 10.0MG AS REQUIRED
     Route: 048
  34. AMLODIPINE [Concomitant]
     Active Substance: AMLODIPINE BESYLATE
     Route: 048
  35. CEREFOLIN NAC [Concomitant]
     Indication: VITAMIN SUPPLEMENTATION
     Dosage: DAILY
     Route: 048
  36. EPINEPHRINE. [Concomitant]
     Active Substance: EPINEPHRINE
     Dosage: 0.3 MG/0.3 ML (1:1,000) IM PEN INJECTOR, ONE SHOT AS NEEDED
     Route: 030
  37. HUMALOG [Concomitant]
     Active Substance: INSULIN LISPRO
     Dosage: PER SLIDING SCALE AS NEEDED
     Route: 058
  38. MAG OXIDE [Concomitant]
     Active Substance: MAGNESIUM OXIDE
     Route: 048
  39. XOPENEX [Concomitant]
     Active Substance: LEVALBUTEROL HYDROCHLORIDE
     Indication: DYSPNOEA
     Dosage: 1.25 MG/3 ML SOLUTION FOR NEBULIZATION, 1 PO AS NEEDED
  40. TRESIBA [Concomitant]
     Active Substance: INSULIN DEGLUDEC
     Dosage: 200 UNIT/ML (3 ML) SUBCUTANEOUS INSULIN PEN, 70 UNITS ONCE
     Route: 058

REACTIONS (3)
  - Contusion [Unknown]
  - Haematoma [Recovered/Resolved]
  - Acute kidney injury [Recovered/Resolved]

NARRATIVE: CASE EVENT DATE: 20160515
